FAERS Safety Report 8522400-0 (Version None)
Quarter: 2012Q3

REPORT INFORMATION
  Report Type: 
  Country: None (occurrence: None)
  Receive Date: 20120719
  Receipt Date: 20120706
  Transmission Date: 20120928
  Serious: Yes (Other)
  Sender: FDA-Public Use
  Company Number: AU-ELI_LILLY_AND_COMPANY-AU201207003162

PATIENT
  Age: 58 Year
  Sex: Male

DRUGS (7)
  1. INDAPAMIDE [Concomitant]
     Indication: HYPERTENSION
     Dosage: 1.5 MG, QD
  2. CANDESARTAN [Concomitant]
     Indication: HYPERTENSION
     Dosage: 32 MG, QD
  3. AMLODIPINE [Concomitant]
     Indication: HYPERTENSION
     Dosage: 10 MG, QD
  4. ROSUVASTATIN [Concomitant]
     Indication: HYPERCHOLESTEROLAEMIA
  5. METFORMIN HYDROCHLORIDE [Concomitant]
     Indication: TYPE 2 DIABETES MELLITUS
     Dosage: 1000 MG, BID
  6. GLICLAZIDE [Concomitant]
     Indication: TYPE 2 DIABETES MELLITUS
     Dosage: 120 MG, QD
  7. EXENATIDE [Suspect]
     Indication: TYPE 2 DIABETES MELLITUS
     Dosage: 5 UG, BID

REACTIONS (2)
  - TUBULOINTERSTITIAL NEPHRITIS [None]
  - WEIGHT DECREASED [None]
